FAERS Safety Report 6066352-4 (Version None)
Quarter: 2009Q1

REPORT INFORMATION
  Report Type: 
  Country: None (occurrence: None)
  Receive Date: 20090130
  Receipt Date: 20090119
  Transmission Date: 20090719
  Serious: Yes (Hospitalization)
  Sender: FDA-Public Use
  Company Number: 2009AL000371

PATIENT
  Age: 82 Year
  Sex: Male

DRUGS (9)
  1. DICLOFENAC SODIUM [Suspect]
     Indication: PAIN IN EXTREMITY
     Dosage: 50 MG, PO
     Route: 048
     Dates: start: 20081212, end: 20081212
  2. OMEPRAZOLE [Concomitant]
  3. PARACETAMOL [Concomitant]
  4. SIMVASTATIN [Concomitant]
  5. ENALAPRIL [Concomitant]
  6. PRAZSOIN HCL [Concomitant]
  7. TIOTROPIUM BROMIDE [Concomitant]
  8. FELODIPINE [Concomitant]
  9. CO-AMILOFRUSE [Concomitant]

REACTIONS (3)
  - DUODENITIS [None]
  - HAEMOGLOBIN DECREASED [None]
  - RENAL IMPAIRMENT [None]
